FAERS Safety Report 9425863 (Version 1)
Quarter: 2013Q3

REPORT INFORMATION
  Report Type: Report from Study
  Country: DE (occurrence: DE)
  Receive Date: 20130729
  Receipt Date: 20130729
  Transmission Date: 20140515
  Serious: Yes (Hospitalization)
  Sender: FDA-Public Use
  Company Number: DE-ABBOTT-13P-062-1123471-00

PATIENT
  Age: 28 Year
  Sex: Female
  Weight: 69 kg

DRUGS (3)
  1. LEVOTHYROXINE (LEVOTHYROXIN) [Suspect]
     Indication: THYROID DISORDER
     Route: 048
  2. HUMIRA [Suspect]
     Indication: CROHN^S DISEASE
     Route: 058
     Dates: start: 20120719, end: 20130613
  3. OMEPRAZOL [Suspect]
     Indication: PRODUCT USED FOR UNKNOWN INDICATION

REACTIONS (1)
  - Gastrointestinal disorder [Not Recovered/Not Resolved]
